FAERS Safety Report 9738458 (Version 5)
Quarter: 2016Q2

REPORT INFORMATION
  Report Type: Spontaneous
  Country: PR (occurrence: PR)
  Receive Date: 20131208
  Receipt Date: 20160520
  Transmission Date: 20160815
  Serious: Yes (Hospitalization, Disabling, Other)
  Sender: FDA-Public Use
  Company Number: US-009507513-1312USA001255

PATIENT
  Sex: Female
  Weight: 86.17 kg

DRUGS (4)
  1. FOSAMAX [Suspect]
     Active Substance: ALENDRONATE SODIUM
     Indication: OSTEOPOROSIS PROPHYLAXIS
  2. FOSAMAX PLUS D [Suspect]
     Active Substance: ALENDRONATE SODIUM\CHOLECALCIFEROL
     Indication: OSTEOPOROSIS PROPHYLAXIS
     Dosage: 70 MG/2800 IU, WEEKLY
     Route: 048
     Dates: start: 2008, end: 2011
  3. FOSAMAX [Suspect]
     Active Substance: ALENDRONATE SODIUM
     Indication: OSTEOPOROSIS
     Dosage: UNK
     Route: 048
  4. ALENDRONATE SODIUM. [Suspect]
     Active Substance: ALENDRONATE SODIUM
     Indication: OSTEOPOROSIS PROPHYLAXIS
     Dosage: 70 MG, QW
     Route: 048
     Dates: start: 20080605, end: 20120108

REACTIONS (25)
  - Low turnover osteopathy [Unknown]
  - Haemoglobin decreased [Unknown]
  - Blood cholesterol increased [Unknown]
  - Hypertension [Unknown]
  - Gallbladder operation [Unknown]
  - Peripheral vascular disorder [Unknown]
  - Hypomagnesaemia [Unknown]
  - Hysterosalpingo-oophorectomy [Unknown]
  - Tonsillectomy [Unknown]
  - Cholelithiasis [Unknown]
  - Fibromyalgia [Unknown]
  - Gastrooesophageal reflux disease [Unknown]
  - Myopathy [Unknown]
  - Rheumatoid arthritis [Unknown]
  - Hypokalaemia [Unknown]
  - Femur fracture [Not Recovered/Not Resolved]
  - Hernia repair [Unknown]
  - Escherichia urinary tract infection [Unknown]
  - Osteoporosis [Unknown]
  - Femur fracture [Not Recovered/Not Resolved]
  - Osteoarthritis [Unknown]
  - Neuropathy peripheral [Unknown]
  - Inguinal hernia [Unknown]
  - Intervertebral disc degeneration [Unknown]
  - Proteinuria [Unknown]

NARRATIVE: CASE EVENT DATE: 2010
